FAERS Safety Report 18026229 (Version 8)
Quarter: 2021Q4

REPORT INFORMATION
  Report Type: Report from Study
  Country: FR (occurrence: FR)
  Receive Date: 20200715
  Receipt Date: 20211018
  Transmission Date: 20220303
  Serious: Yes (Hospitalization, Other)
  Sender: FDA-Public Use
  Company Number: NVSC2020FR196769

PATIENT
  Age: 45 Year
  Sex: Female
  Weight: 54.5 kg

DRUGS (20)
  1. TACROLIMUS [Suspect]
     Active Substance: TACROLIMUS
     Indication: Renal transplant
     Dosage: 8 MG, UNKNOWN
     Route: 048
     Dates: start: 20190730, end: 20190802
  2. TACROLIMUS [Suspect]
     Active Substance: TACROLIMUS
     Dosage: 9 MG, UNKNOWN
     Route: 048
     Dates: start: 20190802, end: 20190803
  3. TACROLIMUS [Suspect]
     Active Substance: TACROLIMUS
     Dosage: 10 MG, UNKNOWN
     Route: 048
     Dates: start: 20190803
  4. TACROLIMUS [Suspect]
     Active Substance: TACROLIMUS
     Dosage: 10 MG, UNKNOWN
     Route: 048
     Dates: start: 20190807, end: 20190813
  5. TACROLIMUS [Suspect]
     Active Substance: TACROLIMUS
     Dosage: 10 MG, UNKNOWN
     Route: 048
     Dates: start: 20190830, end: 20190905
  6. TACROLIMUS [Suspect]
     Active Substance: TACROLIMUS
     Dosage: 11 MG, UNKNOWN
     Route: 048
     Dates: start: 20191031, end: 20200113
  7. TACROLIMUS [Suspect]
     Active Substance: TACROLIMUS
     Dosage: 10 MG, UNKNOWN
     Route: 048
     Dates: start: 20200109, end: 20200316
  8. TACROLIMUS [Suspect]
     Active Substance: TACROLIMUS
     Dosage: 10 MG, UNKNOWN
     Route: 048
     Dates: start: 20200113, end: 20200316
  9. TACROLIMUS [Suspect]
     Active Substance: TACROLIMUS
     Dosage: 9 MG, UNKNOWN
     Route: 048
     Dates: start: 20200317, end: 20200407
  10. TACROLIMUS [Suspect]
     Active Substance: TACROLIMUS
     Dosage: 8 MG, UNKNOWN
     Route: 048
     Dates: start: 20200407, end: 20200424
  11. TACROLIMUS [Suspect]
     Active Substance: TACROLIMUS
     Dosage: 7 MG UNK
     Route: 048
     Dates: start: 20200424, end: 20200518
  12. TACROLIMUS [Suspect]
     Active Substance: TACROLIMUS
     Dosage: 6 MG, UNKNOWN
     Route: 048
     Dates: start: 20200518, end: 20200612
  13. CHOLECALCIFEROL [Concomitant]
     Active Substance: CHOLECALCIFEROL
     Indication: Product used for unknown indication
     Dosage: UNK
     Route: 065
     Dates: start: 20190805
  14. DESOGESTREL [Concomitant]
     Active Substance: DESOGESTREL
     Indication: Product used for unknown indication
     Dosage: UNK
     Route: 065
     Dates: start: 20190805
  15. CALCIUM PHOSPHATE, DIBASIC, ANHYDROUS\MAGNESIUM GLYCEROPHOSPHATE\PHOSP [Concomitant]
     Active Substance: CALCIUM PHOSPHATE, DIBASIC, ANHYDROUS\MAGNESIUM GLYCEROPHOSPHATE\PHOSPHORIC ACID\SODIUM PHOSPHATE, D
     Indication: Product used for unknown indication
     Dosage: UNK
     Route: 065
     Dates: start: 20190805
  16. BACTRIM [Concomitant]
     Active Substance: SULFAMETHOXAZOLE\TRIMETHOPRIM
     Indication: Product used for unknown indication
     Dosage: UNK
     Route: 065
     Dates: start: 20190803
  17. IRBESARTAN [Concomitant]
     Active Substance: IRBESARTAN
     Indication: Product used for unknown indication
     Dosage: UNK
     Route: 065
     Dates: start: 20190802
  18. IMOVANE [Concomitant]
     Active Substance: ZOPICLONE
     Indication: Product used for unknown indication
     Dosage: UNK
     Route: 065
     Dates: start: 20190801
  19. CELLCEPT [Concomitant]
     Active Substance: MYCOPHENOLATE MOFETIL\MYCOPHENOLATE MOFETIL HYDROCHLORIDE
     Indication: Product used for unknown indication
     Dosage: UNK
     Route: 065
     Dates: start: 20190731
  20. RANITIDINE HYDROCHLORIDE [Concomitant]
     Active Substance: RANITIDINE HYDROCHLORIDE
     Indication: Product used for unknown indication
     Dosage: UNK
     Route: 065
     Dates: start: 20190730

REACTIONS (10)
  - Ischaemia [Recovered/Resolved]
  - Cholestasis [Recovered/Resolved]
  - Drug intolerance [Not Recovered/Not Resolved]
  - Tremor [Recovered/Resolved]
  - Diarrhoea [Not Recovered/Not Resolved]
  - Alopecia [Recovered/Resolved]
  - Anaemia [Recovered/Resolved]
  - Anaemia [Not Recovered/Not Resolved]
  - Hypotension [Recovered/Resolved]
  - Vaginal haemorrhage [Recovered/Resolved]

NARRATIVE: CASE EVENT DATE: 20190801
